FAERS Safety Report 9454376 (Version 2)
Quarter: 2013Q4

REPORT INFORMATION
  Report Type: Report from Study
  Country: TR (occurrence: TR)
  Receive Date: 20130812
  Receipt Date: 20131210
  Transmission Date: 20140711
  Serious: Yes (Death, Hospitalization, Other)
  Sender: FDA-Public Use
  Company Number: TR-US-EMD SERONO, INC.-7227977

PATIENT
  Sex: Female
  Weight: 42 kg

DRUGS (1)
  1. REBIF [Suspect]
     Indication: MULTIPLE SCLEROSIS
     Route: 058
     Dates: start: 200903, end: 201306

REACTIONS (5)
  - Gastric haemorrhage [Fatal]
  - Renal impairment [Not Recovered/Not Resolved]
  - Sepsis [Unknown]
  - Influenza [Unknown]
  - Weight decreased [Unknown]
